FAERS Safety Report 12264968 (Version 1)
Quarter: 2016Q2

REPORT INFORMATION
  Report Type: Spontaneous
  Country: US (occurrence: US)
  Receive Date: 20160413
  Receipt Date: 20160413
  Transmission Date: 20160815
  Serious: No
  Sender: FDA-Public Use
  Company Number: US-JNJFOC-20160310599

PATIENT
  Age: 70 Year
  Sex: Female
  Weight: 83.92 kg

DRUGS (9)
  1. POTASSIUM [Concomitant]
     Active Substance: POTASSIUM
     Indication: NUTRITIONAL SUPPLEMENTATION
     Dosage: FOR YEARS
     Route: 065
  2. METFORMIN [Concomitant]
     Active Substance: METFORMIN HYDROCHLORIDE
     Indication: DIABETES MELLITUS
     Dosage: FOR YEARS
     Route: 065
  3. ACETAMIN [Concomitant]
     Active Substance: ACETAMINOPHEN
     Indication: PAIN
     Dosage: FOR 6 WEEKS
     Route: 065
  4. LEVOCETIRIZINE [Concomitant]
     Active Substance: LEVOCETIRIZINE
     Indication: HYPERSENSITIVITY
     Dosage: FOR YEARS
     Route: 065
  5. TYLENOL EXTRA STRENGTH [Suspect]
     Active Substance: ACETAMINOPHEN
     Indication: PROCEDURAL PAIN
     Route: 048
     Dates: end: 20160308
  6. FERROUS SULFATE. [Concomitant]
     Active Substance: FERROUS SULFATE
     Indication: MINERAL SUPPLEMENTATION
     Dosage: FOR YEARS
     Route: 065
  7. BYSTOLIC [Concomitant]
     Active Substance: NEBIVOLOL HYDROCHLORIDE
     Indication: HYPERTENSION
     Dosage: FOR YEARS
     Route: 065
  8. OXYCONTIN [Concomitant]
     Active Substance: OXYCODONE HYDROCHLORIDE
     Indication: PAIN
     Dosage: 5-325MG FOR 6 WEEKS
     Route: 065
  9. DIAZEPAM. [Concomitant]
     Active Substance: DIAZEPAM
     Indication: ANXIETY
     Dosage: 5MG PRN FOR YEARS
     Route: 065

REACTIONS (7)
  - Erythema [Not Recovered/Not Resolved]
  - Rash generalised [Not Recovered/Not Resolved]
  - Off label use [Not Recovered/Not Resolved]
  - Pruritus generalised [Not Recovered/Not Resolved]
  - Product use issue [Not Recovered/Not Resolved]
  - Drug administration error [Not Recovered/Not Resolved]
  - Blister [Not Recovered/Not Resolved]

NARRATIVE: CASE EVENT DATE: 20160308
